FAERS Safety Report 7726723-4 (Version None)
Quarter: 2011Q3

REPORT INFORMATION
  Report Type: 
  Country: None (occurrence: None)
  Receive Date: 20110902
  Receipt Date: 20110901
  Transmission Date: 20111222
  Serious: Yes (Other)
  Sender: FDA-Public Use
  Company Number: PHHY2011AU77433

PATIENT
  Sex: Female

DRUGS (2)
  1. ESTRADIOL [Suspect]
     Dosage: 50/140
     Route: 062
  2. VALPROIC ACID [Concomitant]
     Indication: FIBROMYALGIA
     Dosage: UNK UKN, UNK

REACTIONS (4)
  - FIBROMYALGIA [None]
  - ABDOMINAL PAIN [None]
  - MENSTRUATION IRREGULAR [None]
  - INSOMNIA [None]
